FAERS Safety Report 6839770-1 (Version None)
Quarter: 2010Q3

REPORT INFORMATION
  Report Type: 
  Country: None (occurrence: None)
  Receive Date: 20100714
  Receipt Date: 20100706
  Transmission Date: 20110219
  Serious: Yes (Other)
  Sender: FDA-Public Use
  Company Number: JP-PFIZER INC-2010083721

PATIENT
  Age: 67 Year
  Sex: Male

DRUGS (21)
  1. UNASYN [Suspect]
     Dosage: UNK
     Route: 042
     Dates: start: 20100625
  2. MINOCYCLINE HCL [Concomitant]
     Dosage: UNK
     Dates: start: 20100625
  3. RISPERDAL [Concomitant]
     Dosage: UNK
     Route: 048
     Dates: start: 20100625
  4. NYCLIN [Concomitant]
     Dosage: UNK
     Route: 048
     Dates: start: 20100625
  5. LANDSEN [Concomitant]
     Dosage: UNK
     Route: 048
     Dates: start: 20100625
  6. CINAL [Concomitant]
     Dosage: UNK
     Route: 048
     Dates: start: 20100625
  7. JUVELA [Concomitant]
     Dosage: UNK
     Route: 048
     Dates: start: 20100625
  8. AMBROXOL [Concomitant]
     Dosage: UNK
     Route: 048
     Dates: start: 20100625
  9. TERBINAFINE HYDROCHLORIDE [Concomitant]
     Dosage: UNK
     Route: 048
     Dates: start: 20100625
  10. GLUCOBAY [Concomitant]
     Dosage: UNK
     Route: 048
     Dates: start: 20100625
  11. MUCODYNE [Concomitant]
     Dosage: UNK
     Route: 048
     Dates: start: 20100625
  12. HARNAL [Concomitant]
     Route: 048
  13. MAGNESIUM OXIDE [Concomitant]
     Route: 048
  14. FAMOTIDINE [Concomitant]
     Route: 048
  15. ASPARA K [Concomitant]
     Route: 048
  16. VALTRAX [Concomitant]
     Route: 048
  17. ENSURE [Concomitant]
     Route: 048
  18. TARGOCID [Concomitant]
     Route: 041
  19. BENZALIN [Concomitant]
     Route: 048
  20. SELENICA-R [Concomitant]
     Route: 048
  21. BIOFERMIN R [Concomitant]
     Route: 048

REACTIONS (1)
  - TOXIC SKIN ERUPTION [None]
